FAERS Safety Report 5517617-3 (Version None)
Quarter: 2007Q4

REPORT INFORMATION
  Report Type: 
  Country: None (occurrence: None)
  Receive Date: 20071114
  Receipt Date: 20071102
  Transmission Date: 20080405
  Serious: Yes (Other)
  Sender: FDA-Public Use
  Company Number: US-PFIZER INC-2007093599

PATIENT
  Sex: Female
  Weight: 109.8 kg

DRUGS (7)
  1. LYRICA [Suspect]
     Indication: RHEUMATOID ARTHRITIS
  2. HYDROXYCHLOROQUINE SULFATE [Concomitant]
     Indication: RHEUMATOID ARTHRITIS
  3. POTASSIUM CHLORIDE [Concomitant]
  4. ATENOLOL AND CHLORTHALIDONE [Concomitant]
  5. ACETYLSALICYLIC ACID SRT [Concomitant]
  6. CHONDROITIN/GLUCOSAMINE [Concomitant]
  7. DRUG, UNSPECIFIED [Concomitant]

REACTIONS (5)
  - BLOOD POTASSIUM DECREASED [None]
  - BLOOD PRESSURE INCREASED [None]
  - DRY MOUTH [None]
  - MUSCULAR WEAKNESS [None]
  - TREMOR [None]
